FAERS Safety Report 11323721 (Version 2)
Quarter: 2015Q3

REPORT INFORMATION
  Report Type: Spontaneous
  Country: US (occurrence: US)
  Receive Date: 20150730
  Receipt Date: 20150924
  Transmission Date: 20151125
  Serious: Yes (Other)
  Sender: FDA-Public Use
  Company Number: US-SA-2015SA108494

PATIENT
  Age: 43 Year
  Sex: Female

DRUGS (1)
  1. CAPZASIN HP ARTHRITIS PAIN RELIEF [Suspect]
     Active Substance: CAPSAICIN
     Indication: PAIN
     Dosage: ROUTE:DERMAL
     Route: 061

REACTIONS (5)
  - Burns second degree [Unknown]
  - Erythema [Unknown]
  - Pain [Unknown]
  - Blister [Unknown]
  - Swelling [Unknown]

NARRATIVE: CASE EVENT DATE: 20150719
